FAERS Safety Report 17055249 (Version 1)
Quarter: 2019Q4

REPORT INFORMATION
  Report Type: Report from Study
  Country: FR (occurrence: FR)
  Receive Date: 20191120
  Receipt Date: 20191120
  Transmission Date: 20200122
  Serious: Yes (Other)
  Sender: FDA-Public Use
  Company Number: FR-JAZZ-2017-FR-009090

PATIENT

DRUGS (2)
  1. DEFITELIO [Suspect]
     Active Substance: DEFIBROTIDE SODIUM
     Indication: PROPHYLAXIS
     Dosage: 27.57 MG/KG, QD
     Route: 042
     Dates: start: 20141208, end: 20141208
  2. DEFITELIO [Suspect]
     Active Substance: DEFIBROTIDE SODIUM
     Indication: VENOOCCLUSIVE LIVER DISEASE
     Dosage: 25.78 MG/KG, QD
     Route: 042
     Dates: start: 20141202

REACTIONS (3)
  - Disseminated intravascular coagulation [Unknown]
  - Off label use [Unknown]
  - Viral haemorrhagic cystitis [Recovered/Resolved]

NARRATIVE: CASE EVENT DATE: 20141207
